FAERS Safety Report 14026765 (Version 2)
Quarter: 2018Q3

REPORT INFORMATION
  Report Type: Spontaneous
  Country: CH (occurrence: CH)
  Receive Date: 20170929
  Receipt Date: 20180927
  Transmission Date: 20181010
  Serious: No
  Sender: FDA-Public Use
  Company Number: CH-NOVEN PHARMACEUTICALS, INC.-CH2017000867

PATIENT

DRUGS (4)
  1. XANAX [Concomitant]
     Active Substance: ALPRAZOLAM
  2. VITAMIN D3 [Concomitant]
     Active Substance: CHOLECALCIFEROL
  3. TEMESTA [Concomitant]
  4. ESTRADIOL/NORETHISTERONE ACETATE [Suspect]
     Active Substance: ESTRADIOL\NORETHINDRONE ACETATE
     Indication: MENOPAUSAL DISORDER
     Dosage: UNK, UNKNOWN
     Route: 065
     Dates: start: 201703

REACTIONS (2)
  - Drug ineffective [Unknown]
  - Paraesthesia [Unknown]
